FAERS Safety Report 12622209 (Version 5)
Quarter: 2016Q4

REPORT INFORMATION
  Report Type: Spontaneous
  Country: JP (occurrence: JP)
  Receive Date: 20160804
  Receipt Date: 20161017
  Transmission Date: 20170207
  Serious: Yes (Other)
  Sender: FDA-Public Use
  Company Number: JP-GLAXOSMITHKLINE-JP2016JPN110832

PATIENT
  Age: 49 Year
  Sex: Male

DRUGS (6)
  1. AMLODIN [Concomitant]
     Active Substance: AMLODIPINE BESYLATE
     Dosage: UNK
  2. BENZALIN (JAPAN) [Concomitant]
     Dosage: UNK
  3. LAMICTAL [Suspect]
     Active Substance: LAMOTRIGINE
     Dosage: 25 MG, BID
     Route: 048
     Dates: start: 20160630, end: 20160713
  4. LAMICTAL [Suspect]
     Active Substance: LAMOTRIGINE
     Dosage: 50 MG, BID
     Route: 048
     Dates: start: 20160714, end: 20160725
  5. AZILVA [Concomitant]
     Active Substance: AZILSARTAN KAMEDOXOMIL
     Dosage: UNK
  6. LAMICTAL [Suspect]
     Active Substance: LAMOTRIGINE
     Indication: BIPOLAR DISORDER
     Dosage: 25 MG, QD
     Route: 048
     Dates: start: 20160620, end: 20160629

REACTIONS (9)
  - Dermatitis bullous [Unknown]
  - Urticaria [Not Recovered/Not Resolved]
  - Dyspnoea [Unknown]
  - Pruritus [Recovered/Resolved]
  - Pharyngeal oedema [Unknown]
  - Drug eruption [Not Recovered/Not Resolved]
  - Dry skin [Unknown]
  - Photosensitivity reaction [Not Recovered/Not Resolved]
  - Face oedema [Unknown]

NARRATIVE: CASE EVENT DATE: 20160722
